FAERS Safety Report 10046676 (Version 2)
Quarter: 2014Q3

REPORT INFORMATION
  Report Type: Report from Study
  Country: US (occurrence: US)
  Receive Date: 20140331
  Receipt Date: 20140923
  Transmission Date: 20150326
  Serious: Yes (Other)
  Sender: FDA-Public Use
  Company Number: US-ROCHE-1369276

PATIENT
  Age: 70 Year
  Sex: Female

DRUGS (9)
  1. PULMICORT TURBUHALER [Concomitant]
     Active Substance: BUDESONIDE
     Indication: ASTHMA
     Route: 065
  2. BUTTERBUR [Concomitant]
     Indication: ASTHMA
  3. XOLAIR [Suspect]
     Active Substance: OMALIZUMAB
     Route: 065
     Dates: start: 20131009, end: 201312
  4. STINGING NETTLE [Concomitant]
     Active Substance: HERBALS
     Indication: ASTHMA
  5. LORATADINE. [Concomitant]
     Active Substance: LORATADINE
     Indication: ASTHMA
  6. XOLAIR [Suspect]
     Active Substance: OMALIZUMAB
     Indication: ASTHMA
     Dosage: 3 SHOTS RECEIVED
     Route: 065
     Dates: start: 20130822
  7. SYMBICORT [Concomitant]
     Active Substance: BUDESONIDE\FORMOTEROL FUMARATE DIHYDRATE
     Indication: ASTHMA
  8. LEVOTHYROXINE [Concomitant]
     Active Substance: LEVOTHYROXINE
     Indication: HYPOTHYROIDISM
  9. SINGULAIR [Concomitant]
     Active Substance: MONTELUKAST SODIUM
     Indication: ASTHMA
     Dosage: EVERY NIGHT
     Route: 065

REACTIONS (10)
  - Paralysis [Recovering/Resolving]
  - Pulmonary function test decreased [Unknown]
  - Pain in extremity [Unknown]
  - Nausea [Unknown]
  - Asthma [Unknown]
  - Pain [Recovering/Resolving]
  - Multiple allergies [Unknown]
  - No therapeutic response [Unknown]
  - Epicondylitis [Recovered/Resolved]
  - Polymyalgia rheumatica [Unknown]

NARRATIVE: CASE EVENT DATE: 20131013
